FAERS Safety Report 7214940 (Version 3)
Quarter: 2016Q1

REPORT INFORMATION
  Report Type: Spontaneous
  Country: US (occurrence: US)
  Receive Date: 20091214
  Receipt Date: 20160112
  Transmission Date: 20160526
  Serious: Yes (Other)
  Sender: FDA-Public Use
  Company Number: US-BRISTOL-MYERS SQUIBB COMPANY-14461776

PATIENT
  Sex: Female

DRUGS (2)
  1. ABILIFY [Suspect]
     Active Substance: ARIPIPRAZOLE
     Indication: SCHIZOPHRENIA
     Route: 065
  2. ABILIFY [Suspect]
     Active Substance: ARIPIPRAZOLE
     Indication: SCHIZOPHRENIA
     Dosage: 9.5 MG, UNK
     Route: 048

REACTIONS (6)
  - Psychotic disorder [Unknown]
  - Confusional state [Unknown]
  - Live birth [Unknown]
  - Caesarean section [Unknown]
  - Prolonged pregnancy [Unknown]
  - Maternal exposure during pregnancy [Recovered/Resolved]
